FAERS Safety Report 8441141 (Version 5)
Quarter: 2012Q4

REPORT INFORMATION
  Report Type: 
  Country: US (occurrence: US)
  Receive Date: 20120305
  Receipt Date: 20121114
  Transmission Date: 20130627
  Serious: Yes (Hospitalization, Other)
  Sender: FDA-Public Use
  Company Number: US-009507513-1203USA00203

PATIENT

DRUGS (3)
  1. FOSAMAX [Suspect]
     Dosage: 35 mg, qw
     Route: 048
     Dates: start: 2002, end: 201106
  2. ALENDRONATE SODIUM [Suspect]
     Dosage: 35 mg, qw
     Route: 048
  3. FOSAMAX [Suspect]
     Dosage: 35 mg qw
     Route: 048

REACTIONS (18)
  - Femur fracture [Unknown]
  - Wrist fracture [Unknown]
  - Fall [Unknown]
  - Hypercholesterolaemia [Unknown]
  - Back pain [Unknown]
  - Arthralgia [Unknown]
  - Compression fracture [Unknown]
  - Spondylolisthesis [Unknown]
  - Compression fracture [Unknown]
  - Cataract [Unknown]
  - Tonsillectomy [Unknown]
  - Adenoidectomy [Unknown]
  - Osteopenia [Unknown]
  - Arthralgia [Unknown]
  - Open reduction of fracture [Unknown]
  - Open reduction of fracture [Unknown]
  - Hypertension [Unknown]
  - Osteoporosis [Unknown]
